FAERS Safety Report 14915891 (Version 1)
Quarter: 2018Q2

REPORT INFORMATION
  Report Type: Spontaneous
  Country: None (occurrence: US)
  Receive Date: 20180518
  Receipt Date: 20180518
  Transmission Date: 20180711
  Serious: No
  Sender: FDA-Public Use
  Company Number: US-MEDAC PHARMA, INC.-2048082

PATIENT
  Age: 13 Year
  Sex: Male
  Weight: 47.73 kg

DRUGS (2)
  1. RASUVO [Suspect]
     Active Substance: METHOTREXATE SODIUM
     Indication: AUTOIMMUNE DISORDER
  2. LEUCOVORIN CALCIUM. [Concomitant]
     Active Substance: LEUCOVORIN CALCIUM

REACTIONS (6)
  - Injection site pain [Unknown]
  - Exposure via skin contact [Unknown]
  - Drug administration error [Unknown]
  - Drug dose omission [Unknown]
  - Product use issue [Unknown]
  - Accidental exposure to product [Unknown]

NARRATIVE: CASE EVENT DATE: 20180420
